FAERS Safety Report 7128039-6 (Version None)
Quarter: 2010Q4

REPORT INFORMATION
  Report Type: 
  Country: None (occurrence: None)
  Receive Date: 20101130
  Receipt Date: 20101116
  Transmission Date: 20110411
  Serious: Yes (Other)
  Sender: FDA-Public Use
  Company Number: US-ELI_LILLY_AND_COMPANY-US201009007089

PATIENT
  Age: 84 Year
  Sex: Female

DRUGS (1)
  1. FORTEO [Suspect]
     Indication: OSTEOPOROSIS
     Dosage: 1 D/F, UNKNOWN
     Dates: start: 20100716

REACTIONS (3)
  - HAEMORRHAGE [None]
  - MALIGNANT FIBROUS HISTIOCYTOMA [None]
  - METASTASES TO LUNG [None]
